FAERS Safety Report 8541141-7 (Version None)
Quarter: 2012Q3

REPORT INFORMATION
  Report Type: 
  Country: None (occurrence: None)
  Receive Date: 20120726
  Receipt Date: 20120720
  Transmission Date: 20120928
  Serious: No
  Sender: FDA-Public Use
  Company Number: US-B.I. PHARMACEUTICALS,INC./RIDGEFIELD-2012-BP-16261BP

PATIENT
  Sex: Female

DRUGS (5)
  1. SPIRIVA [Suspect]
     Indication: CHRONIC OBSTRUCTIVE PULMONARY DISEASE
     Dosage: 18 MCG
     Route: 055
     Dates: start: 20110701
  2. ENABLEX [Concomitant]
     Indication: URINARY INCONTINENCE
     Route: 048
     Dates: start: 20020101
  3. ALBUTEROL [Concomitant]
     Route: 055
  4. XANAX [Concomitant]
     Indication: TREMOR
     Dosage: 0.375 MG
     Route: 048
  5. ADVAIR DISKUS 100/50 [Concomitant]
     Indication: CHRONIC OBSTRUCTIVE PULMONARY DISEASE
     Route: 055
     Dates: start: 20000101, end: 20120620

REACTIONS (10)
  - THROAT IRRITATION [None]
  - EYE PAIN [None]
  - LARYNGOSPASM [None]
  - DYSPHAGIA [None]
  - COUGH [None]
  - VESSEL PERFORATION [None]
  - SENSATION OF FOREIGN BODY [None]
  - APHONIA [None]
  - VOMITING [None]
  - CONTUSION [None]
